FAERS Safety Report 8922332 (Version 1)
Quarter: 2012Q4

REPORT INFORMATION
  Report Type: 
  Country: US (occurrence: US)
  Receive Date: 20121123
  Receipt Date: 20121123
  Transmission Date: 20130627
  Serious: Yes (Hospitalization, Other)
  Sender: FDA-Public Use
  Company Number: US-BAYER-2012-112330

PATIENT
  Age: 63 Year
  Sex: Female
  Weight: 182.35 kg

DRUGS (22)
  1. XARELTO [Suspect]
     Indication: ATRIAL FIBRILLATION
     Dosage: 20 mg, UNK
     Route: 048
     Dates: start: 20120807, end: 201209
  2. XARELTO [Interacting]
     Indication: CEREBROVASCULAR ACCIDENT PROPHYLAXIS
  3. ACETYLSALICYLIC ACID({=100 MG) [Interacting]
  4. INSULIN [Concomitant]
     Indication: DIABETES
  5. IRON [Concomitant]
     Indication: ANEMIA
  6. IRON [Concomitant]
     Indication: ANEMIA
     Dates: start: 2011
  7. INSULIN REGULAR [Concomitant]
     Indication: DIABETES
  8. INSULIN NPH [Concomitant]
     Indication: DIABETES
  9. LASIX [Concomitant]
     Indication: WATER RETENTION
  10. SPIRONOLACTONE [Concomitant]
     Indication: WATER RETENTION
     Dosage: UNK
  11. PRISTIQ [Concomitant]
     Indication: DEPRESSION
     Dosage: UNK
  12. ZOLOFT [Concomitant]
     Indication: DEPRESSION
     Dosage: UNK
  13. COZAAR [Concomitant]
     Indication: BLOOD PRESSURE HIGH
     Dosage: UNK
  14. PROMETHAZINE [Concomitant]
     Indication: NAUSEA
     Dosage: UNK
  15. POTASSIUM [Concomitant]
     Indication: POTASSIUM LOW
     Dosage: UNK
  16. VITAMIN D3 [Concomitant]
     Indication: CALCIUM LOW
     Dosage: UNK
  17. VITAMIN B12 [Concomitant]
     Indication: HYPOTHYROIDISM
     Dosage: UNK
  18. XANAX [Concomitant]
     Indication: ANXIETY
     Dosage: UNK
  19. ADVIL [Concomitant]
     Indication: PAIN
     Dosage: UNK
  20. GABAPENTIN [Concomitant]
     Indication: NEUROPATHY
     Dosage: UNK
  21. DULERA [Concomitant]
  22. COREG [Concomitant]
     Indication: BLOOD PRESSURE HIGH
     Dosage: UNK

REACTIONS (7)
  - Haemorrhage [Recovering/Resolving]
  - Haemoglobin decreased [Unknown]
  - Malaise [Recovered/Resolved]
  - Anaemia [Recovering/Resolving]
  - Confusional state [None]
  - Fear [None]
  - Depressed mood [None]
